FAERS Safety Report 23081482 (Version 12)
Quarter: 2024Q2

REPORT INFORMATION
  Report Type: Report from Study
  Country: NL (occurrence: NL)
  Receive Date: 20231019
  Receipt Date: 20240403
  Transmission Date: 20240716
  Serious: Yes (Other)
  Sender: FDA-Public Use
  Company Number: NL-ABBVIE-5454379

PATIENT
  Age: 72 Year
  Sex: Male

DRUGS (11)
  1. CARBIDOPA\LEVODOPA [Suspect]
     Active Substance: CARBIDOPA\LEVODOPA
     Indication: Parkinson^s disease
     Route: 050
     Dates: start: 20230918, end: 20231101
  2. CARBIDOPA\LEVODOPA [Suspect]
     Active Substance: CARBIDOPA\LEVODOPA
     Dosage: MD:5.3ML,?REMAINS AT 16 HOURS
     Route: 050
     Dates: start: 20231109, end: 20231116
  3. CARBIDOPA\LEVODOPA [Suspect]
     Active Substance: CARBIDOPA\LEVODOPA
     Dosage: CD: 2.8 ML/H?REMAINS AT 16 HOURS
     Route: 050
     Dates: start: 20240219, end: 20240328
  4. CARBIDOPA\LEVODOPA [Suspect]
     Active Substance: CARBIDOPA\LEVODOPA
     Dosage: CD: 3.0 ML/H?REMAINS AT 16 HOURS
     Route: 050
     Dates: start: 20240129, end: 20240219
  5. CARBIDOPA\LEVODOPA [Suspect]
     Active Substance: CARBIDOPA\LEVODOPA
     Dosage: MD: 4.8ML
     Route: 050
     Dates: start: 20240328
  6. CARBIDOPA\LEVODOPA [Suspect]
     Active Substance: CARBIDOPA\LEVODOPA
     Dosage: MD:5.3ML; CD:3.4ML/H; ED:1.0ML;?REMAINS AT 16 HOURS
     Route: 050
     Dates: start: 20231101, end: 20231102
  7. CARBIDOPA\LEVODOPA [Suspect]
     Active Substance: CARBIDOPA\LEVODOPA
     Dosage: CD:3.2ML/H?REMAINS AT 16 HOURS
     Route: 050
     Dates: start: 20231102, end: 20231109
  8. CARBIDOPA\LEVODOPA [Suspect]
     Active Substance: CARBIDOPA\LEVODOPA
     Dosage: MD:5.3ML,?REMAINS AT 16 HOURS
     Route: 050
     Dates: start: 20231116, end: 20240118
  9. CARBIDOPA\LEVODOPA [Suspect]
     Active Substance: CARBIDOPA\LEVODOPA
     Dosage: CD 3.1 ML/H?REMAINS AT 16 HOURS
     Route: 050
     Dates: start: 20240118, end: 20240126
  10. CARBIDOPA\LEVODOPA [Suspect]
     Active Substance: CARBIDOPA\LEVODOPA
     Dosage: REMAINS AT 16 HOURS
     Route: 050
  11. CARBIDOPA\LEVODOPA [Suspect]
     Active Substance: CARBIDOPA\LEVODOPA
     Dosage: CD: 3.0ML/H?DURATION TEXT: REMAINS AT 16 HOURS
     Route: 050
     Dates: start: 20240126, end: 20240129

REACTIONS (23)
  - Gastrointestinal disorder [Not Recovered/Not Resolved]
  - Off label use [Not Recovered/Not Resolved]
  - Hallucination [Unknown]
  - Pallor [Not Recovered/Not Resolved]
  - Therapeutic product effect incomplete [Not Recovered/Not Resolved]
  - Dyskinesia [Not Recovered/Not Resolved]
  - On and off phenomenon [Recovered/Resolved]
  - Bradykinesia [Recovered/Resolved]
  - Hypophagia [Recovered/Resolved]
  - Salivary hypersecretion [Recovered/Resolved]
  - Hyperkinesia [Not Recovered/Not Resolved]
  - Gait disturbance [Recovered/Resolved]
  - Memory impairment [Not Recovered/Not Resolved]
  - Dizziness [Not Recovered/Not Resolved]
  - Abnormal dreams [Unknown]
  - Muscle rigidity [Not Recovered/Not Resolved]
  - Bowel movement irregularity [Not Recovered/Not Resolved]
  - Decreased appetite [Not Recovered/Not Resolved]
  - Speech disorder [Not Recovered/Not Resolved]
  - Diarrhoea [Unknown]
  - Gait disturbance [Recovered/Resolved]
  - On and off phenomenon [Not Recovered/Not Resolved]
  - Orthostatic hypotension [Not Recovered/Not Resolved]

NARRATIVE: CASE EVENT DATE: 20230101
